FAERS Safety Report 13575990 (Version 3)
Quarter: 2017Q3

REPORT INFORMATION
  Report Type: Spontaneous
  Country: US (occurrence: US)
  Receive Date: 20170524
  Receipt Date: 20170911
  Transmission Date: 20171127
  Serious: No
  Sender: FDA-Public Use
  Company Number: US-PFIZER INC-2017226706

PATIENT
  Age: 78 Year
  Sex: Female

DRUGS (12)
  1. CLOPIDOGREL [Concomitant]
     Active Substance: CLOPIDOGREL BISULFATE
     Dosage: 75 MG, DAILY
     Route: 048
  2. ERGOCALCIFEROL. [Concomitant]
     Active Substance: ERGOCALCIFEROL
     Dosage: 1.25 MG, CYCLIC[ONCE A WEEEKX8 WEEKS, THEN EVERY OTHER WEEKX8 WEEKS, THEN ONCE A MONTHX2 MONTH]
     Route: 048
  3. GLIPIZIDE. [Concomitant]
     Active Substance: GLIPIZIDE
     Dosage: 5 MG, DAILY
     Route: 048
  4. LISINOPRIL AND HYDROCHLOROTHIAZIDE [Concomitant]
     Active Substance: HYDROCHLOROTHIAZIDE\LISINOPRIL
     Dosage: 1 DF, DAILY[HYDROCHLOROTHIAZIDE-12.5] /  [LISINOPRIL-20]
     Route: 048
  5. LORAZEPAM. [Concomitant]
     Active Substance: LORAZEPAM
     Dosage: 2 MG, UNK[TAKE 2 TABLET ORALLY NOW PRIOR TO MRI]
     Route: 048
  6. IBRANCE [Suspect]
     Active Substance: PALBOCICLIB
     Indication: BREAST CANCER
     Dosage: 125 MG, CYCLIC (1 CAPSULE DAILY FOR 21 DAYS, FOLLOWED BY 1 WEEK, FOR EVERY 28 DAYS CYCLE)
     Route: 048
     Dates: start: 20170118
  7. ATROPINE. [Concomitant]
     Active Substance: ATROPINE
     Dosage: 1 GTT, DAILY
     Route: 047
  8. METFORMIN [Concomitant]
     Active Substance: METFORMIN HYDROCHLORIDE
     Dosage: 500 MG, DAILY
     Route: 048
  9. LATANOPROST. [Concomitant]
     Active Substance: LATANOPROST
     Dosage: 1 GTT, DAILY
     Route: 047
  10. PREDNISOLONE ACETATE/TOBRAMYCIN [Concomitant]
     Dosage: 1 GTT, DAILY
     Route: 047
  11. IBRANCE [Suspect]
     Active Substance: PALBOCICLIB
     Dosage: 100 MG, CYCLIC[TAKE 1 CAPSULE DAILY FOR 21 DAYS, FOLLOWED BY 1 WEEK OFF, FOR EVERY 28 DAYS CYCLE]
     Route: 048
     Dates: start: 20170222
  12. LETROZOLE. [Concomitant]
     Active Substance: LETROZOLE
     Dosage: 2.5 MG, DAILY
     Route: 048

REACTIONS (1)
  - Rash pruritic [Recovered/Resolved]

NARRATIVE: CASE EVENT DATE: 20170217
